FAERS Safety Report 15918483 (Version 2)
Quarter: 2019Q1

REPORT INFORMATION
  Report Type: Report from Study
  Country: PT (occurrence: PT)
  Receive Date: 20190205
  Receipt Date: 20190213
  Transmission Date: 20190417
  Serious: Yes (Hospitalization)
  Sender: FDA-Public Use
  Company Number: PT-SA-2019SA008762

PATIENT
  Age: 46 Year
  Sex: Male
  Weight: 82 kg

DRUGS (5)
  1. INSULIN GLARGINE [Suspect]
     Active Substance: INSULIN GLARGINE
     Dosage: (20 IU + 10 IU),BID
     Dates: start: 20180905
  2. SIMVASTATIN. [Concomitant]
     Active Substance: SIMVASTATIN
     Indication: DYSLIPIDAEMIA
     Dosage: 40 MG, QD
     Dates: start: 2012
  3. BISOPROLOL [Concomitant]
     Active Substance: BISOPROLOL
     Indication: ISCHAEMIC CARDIOMYOPATHY
     Dosage: 5 MG
     Route: 048
     Dates: start: 2012
  4. INSULIN GLARGINE [Suspect]
     Active Substance: INSULIN GLARGINE
     Dosage: (20 IU + 10 IU), BID
     Route: 065
     Dates: start: 201410, end: 20180901
  5. LISINOPRIL. [Concomitant]
     Active Substance: LISINOPRIL
     Indication: HYPERTENSION
     Dosage: 20 MG, QD

REACTIONS (6)
  - Somnolence [Unknown]
  - Prostatitis [Unknown]
  - Loss of consciousness [Unknown]
  - Hypoglycaemia [Recovered/Resolved]
  - Vomiting [Unknown]
  - Pyrexia [Unknown]

NARRATIVE: CASE EVENT DATE: 20180810
